FAERS Safety Report 11105116 (Version 3)
Quarter: 2015Q3

REPORT INFORMATION
  Report Type: Spontaneous
  Country: US (occurrence: US)
  Receive Date: 20150511
  Receipt Date: 20150807
  Transmission Date: 20151125
  Serious: Yes (Hospitalization, Other)
  Sender: FDA-Public Use
  Company Number: US-GLAXOSMITHKLINE-US2015061336

PATIENT
  Age: 85 Year
  Sex: Female

DRUGS (5)
  1. OXYGEN. [Concomitant]
     Active Substance: OXYGEN
     Indication: ANXIETY
  2. XANAX [Suspect]
     Active Substance: ALPRAZOLAM
     Indication: ANXIETY
  3. ADVAIR DISKUS [Suspect]
     Active Substance: FLUTICASONE PROPIONATE\SALMETEROL XINAFOATE
     Indication: DYSPNOEA
     Dosage: UNK
     Dates: start: 20090612
  4. ADVAIR DISKUS [Suspect]
     Active Substance: FLUTICASONE PROPIONATE\SALMETEROL XINAFOATE
     Indication: CHRONIC OBSTRUCTIVE PULMONARY DISEASE
     Dosage: 1 PUFF(S), BID
     Route: 055
     Dates: start: 20141114
  5. ADVAIR DISKUS [Suspect]
     Active Substance: FLUTICASONE PROPIONATE\SALMETEROL XINAFOATE
     Dosage: UNK
     Dates: start: 2013

REACTIONS (16)
  - Rhinorrhoea [Unknown]
  - Oxygen saturation decreased [Unknown]
  - Treatment noncompliance [Unknown]
  - Anxiety [Unknown]
  - Tremor [Unknown]
  - Sinus congestion [Unknown]
  - Bronchitis chronic [Unknown]
  - Nasal congestion [Unknown]
  - Feeling abnormal [Unknown]
  - General physical health deterioration [Unknown]
  - Allergic respiratory symptom [Unknown]
  - Nasopharyngitis [Unknown]
  - Muscular weakness [Unknown]
  - Memory impairment [Unknown]
  - Dyspnoea [Unknown]
  - Loss of consciousness [Unknown]

NARRATIVE: CASE EVENT DATE: 2015
